FAERS Safety Report 17059089 (Version 6)
Quarter: 2021Q4

REPORT INFORMATION
  Report Type: Spontaneous
  Country: US (occurrence: US)
  Receive Date: 20191121
  Receipt Date: 20211110
  Transmission Date: 20220303
  Serious: No
  Sender: FDA-Public Use
  Company Number: US-PFIZER INC-2019504102

PATIENT
  Age: 61 Year
  Sex: Male
  Weight: 104.3 kg

DRUGS (1)
  1. LYRICA [Suspect]
     Active Substance: PREGABALIN
     Indication: Sciatic nerve injury
     Dosage: 150 MG, TWICE A DAY

REACTIONS (9)
  - Withdrawal syndrome [Recovered/Resolved]
  - Insomnia [Unknown]
  - Restless legs syndrome [Unknown]
  - Back injury [Unknown]
  - Dyskinesia [Unknown]
  - Feeling hot [Unknown]
  - Hyperhidrosis [Unknown]
  - Hypersensitivity [Unknown]
  - Paranasal sinus hypersecretion [Unknown]

NARRATIVE: CASE EVENT DATE: 20191110
